FAERS Safety Report 26182130 (Version 1)
Quarter: 2025Q4

REPORT INFORMATION
  Report Type: Spontaneous
  Country: JP (occurrence: JP)
  Receive Date: 20251221
  Receipt Date: 20251221
  Transmission Date: 20260117
  Serious: Yes (Hospitalization)
  Sender: MERCK SHARP & DOHME LLC
  Company Number: JP-009507513-2362585

PATIENT
  Age: 95 Year
  Sex: Male

DRUGS (9)
  1. LAGEVRIO [Suspect]
     Active Substance: MOLNUPIRAVIR
     Indication: COVID-19
     Route: 048
     Dates: start: 20251203
  2. CARBOCYSTEINE [Suspect]
     Active Substance: CARBOCYSTEINE
     Route: 048
     Dates: start: 20251202
  3. HERBALS [Suspect]
     Active Substance: HERBALS
     Route: 048
     Dates: start: 20251202
  4. Metformin Hydrochloride	tablet 200mg [Concomitant]
     Route: 048
  5. TENELIGLIPTIN [Concomitant]
     Active Substance: TENELIGLIPTIN
     Route: 048
  6. DAPAGLIFLOZIN [Concomitant]
     Active Substance: DAPAGLIFLOZIN
     Route: 048
  7. MIYA-BM [Concomitant]
     Active Substance: CLOSTRIDIUM BUTYRICUM SPORES STRAIN M-55
     Route: 048
  8. TWYMEEG Tablets 500mg [Concomitant]
     Route: 048
  9. Insulin Glargine BS Injection [Concomitant]

REACTIONS (1)
  - Stevens-Johnson syndrome [Recovering/Resolving]

NARRATIVE: CASE EVENT DATE: 20251208
